FAERS Safety Report 8304269-2 (Version None)
Quarter: 2012Q2

REPORT INFORMATION
  Report Type: 
  Country: None (occurrence: None)
  Receive Date: 20120423
  Receipt Date: 20120416
  Transmission Date: 20120825
  Serious: Yes (Other)
  Sender: FDA-Public Use
  Company Number: PHHY2012IN032559

PATIENT
  Age: 28 Year
  Sex: Male

DRUGS (3)
  1. RISPERIDONE [Concomitant]
     Dosage: 6 MG, DAILY
  2. LEVOSULPIRIDE [Concomitant]
     Dosage: 50 MG, DAILY
  3. CLOZAPINE [Suspect]
     Dosage: 450 MG, DAILY

REACTIONS (2)
  - MUTISM [None]
  - DRUG RESISTANCE [None]
